FAERS Safety Report 18003920 (Version 2)
Quarter: 2020Q3

REPORT INFORMATION
  Report Type: Spontaneous
  Country: US (occurrence: US)
  Receive Date: 20200709
  Receipt Date: 20200709
  Transmission Date: 20201103
  Serious: No
  Sender: FDA-Public Use
  Company Number: US-ASTELLAS-2019US045434

PATIENT
  Age: 58 Year
  Sex: Male

DRUGS (2)
  1. MYRBETRIQ [Suspect]
     Active Substance: MIRABEGRON
     Indication: HYPERTONIC BLADDER
     Dosage: 50 MG, ONCE DAILY (INTERMITTENTLY)
     Route: 048
     Dates: start: 201910, end: 20191120
  2. MYRBETRIQ [Suspect]
     Active Substance: MIRABEGRON
     Indication: HYPERTONIC BLADDER
     Dosage: 25 MG, ONCE DAILY (INTERMITTENTLY)
     Route: 048
     Dates: start: 201904, end: 20191120

REACTIONS (3)
  - Drug ineffective [Unknown]
  - Dysuria [Not Recovered/Not Resolved]
  - Treatment noncompliance [Unknown]
